FAERS Safety Report 15361343 (Version 1)
Quarter: 2018Q3

REPORT INFORMATION
  Report Type: Spontaneous
  Country: US (occurrence: US)
  Receive Date: 20180907
  Receipt Date: 20180907
  Transmission Date: 20181010
  Serious: Yes (Death, Other)
  Sender: FDA-Public Use
  Company Number: US-ENDO PHARMACEUTICALS INC-2018-040987

PATIENT
  Age: 57 Year
  Sex: Female

DRUGS (1)
  1. OXYCODONE HYDROCHLORIDE. [Suspect]
     Active Substance: OXYCODONE HYDROCHLORIDE
     Indication: PRODUCT USED FOR UNKNOWN INDICATION
     Dosage: UNK UNKNOWN, UNKNOWN
     Route: 042

REACTIONS (6)
  - Drug abuse [Unknown]
  - Pulmonary embolism [Unknown]
  - Ventricular fibrillation [Fatal]
  - Right ventricular failure [Unknown]
  - Pulmonary hypertension [Unknown]
  - Foreign body reaction [Unknown]
